FAERS Safety Report 12887466 (Version 1)
Quarter: 2016Q4

REPORT INFORMATION
  Report Type: Spontaneous
  Country: FR (occurrence: FR)
  Receive Date: 20161026
  Receipt Date: 20161026
  Transmission Date: 20170207
  Serious: Yes (Hospitalization)
  Sender: FDA-Public Use
  Company Number: FR-ASTRAZENECA-2016SF11651

PATIENT
  Age: 25581 Day
  Sex: Female

DRUGS (10)
  1. COLCHIMAX [Suspect]
     Active Substance: COLCHICINE\DICYCLOMINE HYDROCHLORIDE
     Indication: GOUT
     Route: 065
     Dates: start: 20160902, end: 20160905
  2. MOPRAL [Suspect]
     Active Substance: OMEPRAZOLE SODIUM
     Route: 048
     Dates: start: 20160902, end: 20160908
  3. COLCHIMAX [Suspect]
     Active Substance: COLCHICINE\DICYCLOMINE HYDROCHLORIDE
     Indication: GOUT
     Route: 065
     Dates: start: 20160905, end: 20160906
  4. ZYLORIC [Suspect]
     Active Substance: ALLOPURINOL
     Route: 065
     Dates: start: 20160902, end: 20160906
  5. METFORMINE [Concomitant]
     Active Substance: METFORMIN HYDROCHLORIDE
  6. DOLIPRANE [Suspect]
     Active Substance: ACETAMINOPHEN
     Route: 065
     Dates: start: 20160902, end: 20160909
  7. INEGY [Concomitant]
     Active Substance: EZETIMIBE\SIMVASTATIN
  8. SOTALEX [Concomitant]
     Active Substance: SOTALOL
  9. VOLTARENE [Suspect]
     Active Substance: DICLOFENAC SODIUM
     Indication: GOUT
     Route: 065
     Dates: start: 20160902, end: 20160906
  10. LEVOTHYROX [Concomitant]
     Active Substance: LEVOTHYROXINE
     Dosage: 50.0UG UNKNOWN

REACTIONS (16)
  - Myalgia [Recovered/Resolved]
  - Overdose [Recovered/Resolved]
  - Vomiting [None]
  - Large intestinal haemorrhage [Recovered/Resolved]
  - Incorrect dose administered [Recovered/Resolved]
  - Malaise [None]
  - Hyperkalaemia [None]
  - Rectal haemorrhage [None]
  - Vomiting [Recovered/Resolved]
  - Acute kidney injury [Recovered/Resolved]
  - Diarrhoea [Recovered/Resolved]
  - Atrioventricular block complete [Recovered/Resolved]
  - Bradycardia [Recovered/Resolved]
  - Large intestinal ulcer [Recovering/Resolving]
  - Nausea [Recovered/Resolved]
  - Vision blurred [Recovered/Resolved]

NARRATIVE: CASE EVENT DATE: 20160902
